FAERS Safety Report 13937809 (Version 1)
Quarter: 2017Q3

REPORT INFORMATION
  Report Type: Spontaneous
  Country: US (occurrence: US)
  Receive Date: 20170905
  Receipt Date: 20170905
  Transmission Date: 20171127
  Serious: Yes (Death, Life-Threatening, Other)
  Sender: FDA-Public Use
  Company Number: US-EMD SERONO-8179291

PATIENT
  Age: 46 Year
  Sex: Male
  Weight: 184 kg

DRUGS (3)
  1. TESTOSTERONE. [Concomitant]
     Active Substance: TESTOSTERONE
     Indication: MUSCLE BUILDING THERAPY
     Dates: start: 1989
  2. DECA-DURABOLIN [Concomitant]
     Active Substance: NANDROLONE DECANOATE
     Indication: MUSCLE BUILDING THERAPY
     Dates: start: 1989
  3. SEROSTIM [Suspect]
     Active Substance: SOMATROPIN
     Indication: MUSCLE BUILDING THERAPY

REACTIONS (7)
  - Drug abuse [Unknown]
  - Hepatic enzyme increased [Unknown]
  - Gynaecomastia [Unknown]
  - Alopecia [Unknown]
  - Death [Fatal]
  - Loss of consciousness [Unknown]
  - Intentional product misuse [Unknown]

NARRATIVE: CASE EVENT DATE: 201708
